FAERS Safety Report 20910380 (Version 1)
Quarter: 2022Q2

REPORT INFORMATION
  Report Type: Spontaneous
  Country: US (occurrence: US)
  Receive Date: 20220603
  Receipt Date: 20220603
  Transmission Date: 20220721
  Serious: No
  Sender: FDA-Public Use
  Company Number: US-BRISTOL-MYERS SQUIBB COMPANY-2022-037267

PATIENT
  Age: 44 Year
  Sex: Female
  Weight: 60 kg

DRUGS (1)
  1. REVLIMID [Suspect]
     Active Substance: LENALIDOMIDE
     Indication: Plasma cell myeloma
     Dosage: FREQUENCY; DAILY DAYS 1-21, EVERY 28 DAYS
     Route: 048
     Dates: start: 20201219

REACTIONS (5)
  - Product dose omission issue [Recovering/Resolving]
  - Nasopharyngitis [Recovering/Resolving]
  - Asthenopia [Recovering/Resolving]
  - Respiratory tract infection [Unknown]
  - Fatigue [Unknown]
